FAERS Safety Report 11980883 (Version 1)
Quarter: 2016Q1

REPORT INFORMATION
  Report Type: Spontaneous
  Country: US (occurrence: US)
  Receive Date: 20160129
  Receipt Date: 20160129
  Transmission Date: 20160526
  Serious: Yes (Other)
  Sender: FDA-Public Use
  Company Number: US-PFIZER INC-2016028170

PATIENT
  Age: 25 Year
  Sex: Male
  Weight: 78.84 kg

DRUGS (8)
  1. ADVIL [Suspect]
     Active Substance: IBUPROFEN
     Dosage: 200MG, 3 AT A DOSE THREE OR FOUR TIMES A DAY
  2. ROPINIROLE. [Concomitant]
     Active Substance: ROPINIROLE
     Indication: PARKINSON^S DISEASE
     Dosage: 2 MG, 3X/DAY
     Route: 048
  3. ENTACAPONE. [Concomitant]
     Active Substance: ENTACAPONE
     Dosage: 200MG, 5 TIMES A DAY
     Route: 048
  4. SINEMET [Concomitant]
     Active Substance: CARBIDOPA\LEVODOPA
     Indication: PARKINSON^S DISEASE
     Dosage: [CARBIDOPA 50MG]/[LEVODOPA 200MG] TIME RELEASED TABLET, 5 TIMES A DAY
     Route: 048
     Dates: start: 1996
  5. ADVIL [Suspect]
     Active Substance: IBUPROFEN
     Indication: INFLAMMATION
     Dosage: UNK
     Dates: start: 1972
  6. ADVIL [Suspect]
     Active Substance: IBUPROFEN
     Dosage: 200MG, 3 AT A DOSE AND WILL TAKE IT THREE OR FOUR TIMES A DAY
     Route: 048
     Dates: start: 201410, end: 201512
  7. AMANTADINE [Concomitant]
     Active Substance: AMANTADINE
     Indication: PARKINSON^S DISEASE
     Dosage: 100MG, CAPSULE, ONCE OR TWICE A DAY
     Route: 048
     Dates: start: 2011
  8. ROPINIROLE. [Concomitant]
     Active Substance: ROPINIROLE
     Indication: RESTLESS LEGS SYNDROME

REACTIONS (10)
  - Tremor [Unknown]
  - Chondrocalcinosis pyrophosphate [Unknown]
  - Cartilage injury [Unknown]
  - Gout [Not Recovered/Not Resolved]
  - Product use issue [Unknown]
  - Arthropathy [Unknown]
  - Therapeutic response unexpected [Not Recovered/Not Resolved]
  - Pre-existing condition improved [Not Recovered/Not Resolved]
  - Muscular weakness [Not Recovered/Not Resolved]
  - Intentional product use issue [Not Recovered/Not Resolved]

NARRATIVE: CASE EVENT DATE: 1972
